FAERS Safety Report 26082741 (Version 1)
Quarter: 2025Q4

REPORT INFORMATION
  Report Type: Spontaneous
  Country: US (occurrence: US)
  Receive Date: 20251124
  Receipt Date: 20251124
  Transmission Date: 20260118
  Serious: No
  Sender: AMGEN
  Company Number: US-AMGEN-USASP2025230032

PATIENT
  Sex: Male

DRUGS (2)
  1. KRYSTEXXA [Suspect]
     Active Substance: PEGLOTICASE
     Indication: Product used for unknown indication
     Dosage: UNK
     Route: 040
     Dates: start: 2025
  2. LEFLUNOMIDE [Suspect]
     Active Substance: LEFLUNOMIDE
     Indication: Immunomodulatory therapy
     Dosage: UNK
     Route: 065
     Dates: start: 2025

REACTIONS (2)
  - Muscular weakness [Unknown]
  - Gout [Unknown]

NARRATIVE: CASE EVENT DATE: 20250101
